FAERS Safety Report 7955099-2 (Version None)
Quarter: 2011Q4

REPORT INFORMATION
  Report Type: 
  Country: None (occurrence: None)
  Receive Date: 20111202
  Receipt Date: 20111123
  Transmission Date: 20120403
  Serious: Yes (Hospitalization)
  Sender: FDA-Public Use
  Company Number: FR-NOVOPROD-336728

PATIENT

DRUGS (10)
  1. VICTOZA [Suspect]
     Indication: TYPE 2 DIABETES MELLITUS
     Dosage: 1.8 MG, QD
     Route: 058
     Dates: start: 20110818, end: 20110921
  2. VICTOZA [Suspect]
     Dosage: 0.6 MG, QD
     Route: 058
     Dates: start: 20101008, end: 20101018
  3. BISOPROLOL FUMARATE AND HYDROCHLOROTHIAZIDE [Concomitant]
     Dosage: 10 MG, QD
     Route: 048
  4. ASPIRIN [Concomitant]
     Dosage: 75 MG, QD
     Route: 048
     Dates: start: 20000101
  5. VICTOZA [Suspect]
     Dosage: 1.2 MG, QD
     Route: 058
     Dates: start: 20111018
  6. METFORMIN HCL [Concomitant]
     Dosage: 2.1 G, QD
     Route: 048
     Dates: start: 20050101
  7. DIAMICRON [Concomitant]
     Dosage: 30 MG, QD
     Dates: start: 20090101
  8. COVERSYL                           /00790702/ [Concomitant]
  9. AMLODIPINE BESYLATE [Concomitant]
  10. CRESTOR [Concomitant]
     Dosage: 10 MG, QD

REACTIONS (1)
  - PANCREATITIS ACUTE [None]
